FAERS Safety Report 9409901 (Version 2)
Quarter: 2013Q3

REPORT INFORMATION
  Report Type: Report from Study
  Country: JP (occurrence: JP)
  Receive Date: 20130719
  Receipt Date: 20130730
  Transmission Date: 20140515
  Serious: Yes (Hospitalization)
  Sender: FDA-Public Use
  Company Number: JP-ROCHE-1208089

PATIENT
  Age: 12 Year
  Sex: Male
  Weight: 153.8 kg

DRUGS (13)
  1. TOCILIZUMAB [Suspect]
     Indication: JUVENILE IDIOPATHIC ARTHRITIS
     Route: 041
     Dates: start: 20111108
  2. PREDNISOLONE [Suspect]
     Indication: JUVENILE IDIOPATHIC ARTHRITIS
     Route: 048
     Dates: start: 20110922, end: 20111213
  3. PREDNISOLONE [Suspect]
     Route: 048
     Dates: start: 20120327, end: 20120409
  4. PREDNISOLONE [Suspect]
     Route: 048
     Dates: start: 20120410
  5. PREDNISOLONE [Suspect]
     Route: 048
  6. METHOTREXATE [Suspect]
     Indication: JUVENILE IDIOPATHIC ARTHRITIS
     Route: 048
     Dates: start: 20090430
  7. METHOTREXATE [Suspect]
     Route: 048
     Dates: start: 20110906
  8. GASTER D [Concomitant]
     Indication: PROPHYLAXIS
     Route: 048
     Dates: start: 20090430
  9. GASTER D [Concomitant]
     Indication: PROPHYLAXIS
     Route: 048
     Dates: start: 20110906
  10. NAIXAN [Concomitant]
     Indication: JUVENILE IDIOPATHIC ARTHRITIS
     Route: 048
     Dates: start: 20071101
  11. NAIXAN [Concomitant]
     Indication: JUVENILE IDIOPATHIC ARTHRITIS
     Route: 048
     Dates: start: 20110906
  12. ONEALFA [Concomitant]
     Indication: PROPHYLAXIS
     Route: 048
     Dates: start: 20110906
  13. ROCALTROL [Concomitant]
     Indication: PROPHYLAXIS
     Route: 048
     Dates: start: 20120214

REACTIONS (2)
  - Arthritis bacterial [Recovered/Resolved]
  - White blood cell count increased [Unknown]
